FAERS Safety Report 13656258 (Version 1)
Quarter: 2017Q2

REPORT INFORMATION
  Report Type: Spontaneous
  Country: KR (occurrence: KR)
  Receive Date: 20170615
  Receipt Date: 20170615
  Transmission Date: 20170830
  Serious: Yes (Death, Other)
  Sender: FDA-Public Use
  Company Number: KR-ROCHE-1716958

PATIENT
  Age: 53 Year
  Sex: Female
  Weight: 45 kg

DRUGS (7)
  1. DOCETAXEL. [Suspect]
     Active Substance: DOCETAXEL
     Indication: BREAST CANCER METASTATIC
     Route: 042
     Dates: start: 20151111
  2. CHLORPHENIRAMINE MALEATE. [Concomitant]
     Active Substance: CHLORPHENIRAMINE MALEATE
     Indication: PROPHYLAXIS
     Route: 042
     Dates: start: 20151111, end: 20151111
  3. PERTUZUMAB [Suspect]
     Active Substance: PERTUZUMAB
     Indication: BREAST CANCER METASTATIC
     Route: 042
     Dates: start: 20151111
  4. TRASTUZUMAB [Suspect]
     Active Substance: TRASTUZUMAB
     Indication: BREAST CANCER METASTATIC
     Route: 042
     Dates: start: 20151111
  5. DEXAMETHASONE. [Concomitant]
     Active Substance: DEXAMETHASONE
     Indication: PROPHYLAXIS
     Route: 042
     Dates: start: 20151111, end: 20151111
  6. MECKOOL [Concomitant]
     Indication: PROPHYLAXIS
     Route: 042
     Dates: start: 20151111, end: 20151111
  7. TACENOL ER [Concomitant]
     Indication: PROPHYLAXIS
     Route: 048
     Dates: start: 20151111, end: 20151111

REACTIONS (6)
  - Dyspnoea [Not Recovered/Not Resolved]
  - Septic shock [Fatal]
  - Hypotension [Not Recovered/Not Resolved]
  - Neutropenia [Recovered/Resolved]
  - Melaena [Not Recovered/Not Resolved]
  - Ascites [Not Recovered/Not Resolved]

NARRATIVE: CASE EVENT DATE: 20151112
